FAERS Safety Report 7462996-3 (Version None)
Quarter: 2011Q2

REPORT INFORMATION
  Report Type: 
  Country: None (occurrence: None)
  Receive Date: 20110506
  Receipt Date: 20080116
  Transmission Date: 20111010
  Serious: Yes (Death, Life-Threatening, Hospitalization, Other)
  Sender: FDA-Public Use
  Company Number: US-BAYER-200612407BWH

PATIENT
  Age: 74 Year
  Sex: Female
  Weight: 51.8 kg

DRUGS (58)
  1. TRASYLOL [Suspect]
     Indication: AORTIC VALVE REPLACEMENT
     Dosage: 57 ML, UNK
     Route: 042
     Dates: start: 20040804, end: 20040804
  2. ANTIBIOTICS [Suspect]
  3. SYNTHROID [Concomitant]
     Dosage: 0.5 MG (DAILY DOSE), ,
  4. ASCORBIC ACID [Concomitant]
  5. NORMAL SALINE [Concomitant]
  6. SOLU-CORTEF [Concomitant]
  7. CALCIUM [Concomitant]
  8. ZYVOX [Concomitant]
     Dosage: UNK
     Dates: start: 20040804
  9. NIMBEX [Suspect]
  10. WARFARIN [Concomitant]
  11. FOSAMAX [Concomitant]
     Dosage: 70 MG, WEEKLY
  12. PROTAMINE SULFATE [Concomitant]
     Dosage: 350 MG, UNK
     Dates: start: 20040804, end: 20040804
  13. SONATA [Concomitant]
     Dosage: UNK
  14. INSULIN [Concomitant]
  15. LEVAQUIN [Concomitant]
     Dosage: 500 MG, QD
     Route: 042
     Dates: start: 20040730
  16. IRON SULFATETHIAMIN COMPOUND TAB [Concomitant]
  17. MANNITOL [Concomitant]
  18. AMIODARONE [Concomitant]
     Dosage: 125 MG, UNK
     Dates: start: 20040804
  19. EPINEPHRINE [Concomitant]
  20. RED BLOOD CELLS [Concomitant]
     Dosage: 6 U, UNK
     Route: 042
     Dates: start: 20040804
  21. DIGOXIN [Concomitant]
     Dosage: 0.125 MG (DAILY DOSE), ,
  22. HEPARIN [Concomitant]
  23. SOLUTIONS AFFECTING THE ELECTROLYTE BALANCE [Concomitant]
  24. VANCOMYCIN [Concomitant]
     Dosage: UNK
     Dates: start: 20040814
  25. LASIX [Concomitant]
     Dosage: 40 MG, UNK
  26. INSULIN [INSULIN] [Concomitant]
  27. ALBUMIN (HUMAN) [Concomitant]
  28. BENADRYL [Concomitant]
  29. PLASMA [Concomitant]
     Dosage: 6 UNK, UNK
     Dates: start: 20040804
  30. LESCOL [Concomitant]
     Dosage: 40-80MG, NIGHTLY
  31. ALBUMIN NOS [Concomitant]
  32. NORMOSOL [Concomitant]
  33. ZITHROMAX [Concomitant]
  34. AMIODARONE [Concomitant]
     Dosage: 200 MG, QD
     Route: 048
     Dates: start: 20040525, end: 20040713
  35. DOPAMINE HCL [Concomitant]
  36. VITAMIN C [Concomitant]
  37. LACTATED RINGER'S [Concomitant]
  38. DOPAMINE HCL [Concomitant]
  39. ACETYLSALICYLIC ACID SRT [Concomitant]
     Dosage: 325 MG, QD
     Route: 048
  40. COUMADIN [Concomitant]
     Indication: ATRIAL FIBRILLATION
     Dosage: UNK
     Route: 048
     Dates: start: 20040724
  41. PROTAMINE SULFATE [Suspect]
  42. DARVOCET [Concomitant]
  43. CALCIUM [CALCIUM] [Concomitant]
  44. LASIX [Concomitant]
     Dosage: 20 MG, QD
     Dates: start: 20040713
  45. VITAMINS [Concomitant]
  46. POTASSIUM CHLORIDE [Concomitant]
  47. KANAMYCIN SULFATE [Concomitant]
  48. DIPHENHYDRAMINE [Concomitant]
  49. LEVOXYL [Concomitant]
     Indication: UNEVALUABLE EVENT
     Dosage: 500 ?G, QD
     Dates: start: 20040603
  50. PLATELETS [Concomitant]
     Dosage: 2 U, UNK
     Route: 042
     Dates: start: 20040804
  51. ANESTHESIA [Suspect]
  52. LESCOL [Concomitant]
     Dosage: 80 MG (DAILY DOSE), ,
  53. NEO SYNEPHRIN [Concomitant]
  54. VERSED [Concomitant]
  55. CEFAZOLIN [Concomitant]
  56. ZANTAC [Concomitant]
  57. SODIUM CHLORIDE [Concomitant]
  58. MAGNESIUM SULFATE [Concomitant]

REACTIONS (17)
  - ANAPHYLACTIC REACTION [None]
  - VENTRICULAR HYPOKINESIA [None]
  - OEDEMA [None]
  - STRESS [None]
  - RENAL INJURY [None]
  - RENAL FAILURE [None]
  - HYPOTENSION [None]
  - CARDIAC ARREST [None]
  - EMOTIONAL DISTRESS [None]
  - ANAPHYLACTIC SHOCK [None]
  - ANXIETY [None]
  - FEAR [None]
  - PAIN [None]
  - VENTRICULAR FIBRILLATION [None]
  - MULTI-ORGAN FAILURE [None]
  - RESPIRATORY FAILURE [None]
  - RENAL IMPAIRMENT [None]
